FAERS Safety Report 5442986-2 (Version None)
Quarter: 2007Q3

REPORT INFORMATION
  Report Type: 
  Country: None (occurrence: None)
  Receive Date: 20070905
  Receipt Date: 20070827
  Transmission Date: 20080115
  Serious: Yes (Other)
  Sender: FDA-Public Use
  Company Number: PHNU2005DE01164

PATIENT
  Age: 61 Year
  Sex: Male

DRUGS (2)
  1. ZOMETA [Suspect]
     Indication: OSTEOLYSIS
     Dosage: 4 MG, QMO
     Route: 042
     Dates: start: 20031001, end: 20041201
  2. AUTOLOGOUS TRANSPLANTATION [Concomitant]

REACTIONS (9)
  - BIOPSY BONE ABNORMAL [None]
  - BONE TRIMMING [None]
  - DENTAL DISCOMFORT [None]
  - EXCESSIVE GRANULATION TISSUE [None]
  - INFLAMMATION [None]
  - JAW OPERATION [None]
  - OSTEOMYELITIS [None]
  - OSTEONECROSIS [None]
  - TOOTH EXTRACTION [None]
